FAERS Safety Report 5090011-8 (Version None)
Quarter: 2006Q3

REPORT INFORMATION
  Report Type: 
  Country: None (occurrence: None)
  Receive Date: 20060731
  Receipt Date: 20060607
  Transmission Date: 20061208
  Serious: Yes (Other)
  Sender: FDA-Public Use
  Company Number: 200612944BWH

PATIENT
  Sex: Female

DRUGS (1)
  1. AVELOX [Suspect]
     Indication: DRUG USE FOR UNKNOWN INDICATION
     Dosage: ONCE, ORAL
     Route: 048
     Dates: start: 20060505

REACTIONS (7)
  - ANAPHYLACTIC SHOCK [None]
  - DIZZINESS [None]
  - LOSS OF CONSCIOUSNESS [None]
  - PARAESTHESIA [None]
  - PRURITUS [None]
  - RASH [None]
  - URTICARIA [None]
